FAERS Safety Report 11543095 (Version 1)
Quarter: 2015Q3

REPORT INFORMATION
  Report Type: Other
  Country: NL (occurrence: NL)
  Receive Date: 20150923
  Receipt Date: 20150923
  Transmission Date: 20151125
  Serious: Yes (Other)
  Sender: FDA-Public Use
  Company Number: NL-APOTEX-2015AP009193

PATIENT
  Age: 37 Year
  Sex: Female

DRUGS (1)
  1. FLUCONAZOLE. [Suspect]
     Active Substance: FLUCONAZOLE
     Indication: VULVOVAGINAL CANDIDIASIS
     Dosage: 150 MG, SINGLE
     Route: 065

REACTIONS (1)
  - Dermatitis bullous [Not Recovered/Not Resolved]
